FAERS Safety Report 10037734 (Version 1)
Quarter: 2014Q1

REPORT INFORMATION
  Report Type: Spontaneous
  Country: US (occurrence: None)
  Receive Date: 20140324
  Receipt Date: 20140324
  Transmission Date: 20141002
  Serious: Yes (Hospitalization)
  Sender: FDA-Public Use
  Company Number: B0978140A

PATIENT
  Age: 67 Year
  Sex: Female

DRUGS (1)
  1. CARVEDILOL [Suspect]
     Indication: PRODUCT USED FOR UNKNOWN INDICATION
     Dosage: 3.125 MG / TWICE PER DAY / UNKNOWN

REACTIONS (2)
  - Liver injury [None]
  - Drug-induced liver injury [None]
